FAERS Safety Report 25137698 (Version 2)
Quarter: 2025Q2

REPORT INFORMATION
  Report Type: Report from Study
  Country: US (occurrence: US)
  Receive Date: 20250329
  Receipt Date: 20250428
  Transmission Date: 20250716
  Serious: Yes (Other)
  Sender: ACCORD
  Company Number: US-SMPA-2024SPA006096

PATIENT
  Age: 75 Year
  Sex: Male

DRUGS (4)
  1. FINASTERIDE [Suspect]
     Active Substance: FINASTERIDE
     Indication: Product used for unknown indication
  2. LISINOPRIL [Suspect]
     Active Substance: LISINOPRIL
     Indication: Product used for unknown indication
  3. RELUGOLIX [Suspect]
     Active Substance: RELUGOLIX
     Indication: Prostate cancer
     Dosage: 360 MG, SINGLE
     Route: 048
     Dates: start: 20241117, end: 20241117
  4. RELUGOLIX [Suspect]
     Active Substance: RELUGOLIX
     Indication: Prostate cancer
     Dosage: 120 MG, QD
     Route: 048
     Dates: start: 20241118

REACTIONS (14)
  - Urinary retention [Unknown]
  - Lethargy [Unknown]
  - Faeces soft [Unknown]
  - Hypotension [Recovering/Resolving]
  - Urinary tract infection [Recovered/Resolved]
  - Abdominal pain [Unknown]
  - Muscle atrophy [Unknown]
  - Apathy [Unknown]
  - Dizziness [Recovered/Resolved]
  - Arthralgia [Unknown]
  - Asthenia [Unknown]
  - Hot flush [Unknown]
  - Back pain [Not Recovered/Not Resolved]
  - Musculoskeletal stiffness [Unknown]
